FAERS Safety Report 5896336-8 (Version None)
Quarter: 2008Q3

REPORT INFORMATION
  Report Type: 
  Country: None (occurrence: None)
  Receive Date: 20080924
  Receipt Date: 20071012
  Transmission Date: 20090109
  Serious: Yes (Other)
  Sender: FDA-Public Use
  Company Number: US-ASTRAZENECA-2007UW21139

PATIENT
  Age: 57 Year
  Sex: Male
  Weight: 158.8 kg

DRUGS (11)
  1. SEROQUEL [Suspect]
     Indication: SCHIZOPHRENIA
     Route: 048
     Dates: start: 20060101, end: 20071008
  2. SEROQUEL [Suspect]
     Dosage: 400 MG QAM + 600 MG QHS
     Route: 048
     Dates: start: 20071009
  3. PAROXETINE HCL [Concomitant]
  4. HALDOL [Concomitant]
  5. BENZAPTROPINE [Concomitant]
  6. TOPAMAX [Concomitant]
     Dates: end: 20071008
  7. FUROSEMIDE [Concomitant]
  8. POTASSIUM CHLORIDE [Concomitant]
  9. LIPITOR [Concomitant]
  10. METOPROLOL TARTRATE [Concomitant]
  11. SPIRONOLACT [Concomitant]

REACTIONS (4)
  - DENTAL CARIES [None]
  - DRY MOUTH [None]
  - OEDEMA PERIPHERAL [None]
  - WEIGHT INCREASED [None]
